FAERS Safety Report 8775967 (Version 3)
Quarter: 2012Q4

REPORT INFORMATION
  Report Type: 
  Country: JP (occurrence: JP)
  Receive Date: 20120910
  Receipt Date: 20121106
  Transmission Date: 20130627
  Serious: Yes (Other)
  Sender: FDA-Public Use
  Company Number: JP-ROCHE-1114693

PATIENT
  Sex: Female
  Weight: 61 kg

DRUGS (12)
  1. MIRCERA [Suspect]
     Indication: NEPHROGENIC ANAEMIA
     Route: 058
     Dates: start: 20111130, end: 20120305
  2. MIRCERA [Suspect]
     Indication: NEPHROGENIC ANAEMIA
     Route: 058
     Dates: start: 20120425, end: 20120601
  3. EPOGIN S [Suspect]
     Indication: NEPHROGENIC ANAEMIA
     Route: 058
     Dates: start: 20111102, end: 20111102
  4. EPOGIN S [Suspect]
     Indication: NEPHROGENIC ANAEMIA
     Route: 042
     Dates: start: 20120305, end: 20120423
  5. EPOGIN S [Suspect]
     Indication: NEPHROGENIC ANAEMIA
     Route: 042
     Dates: start: 20120604, end: 20120810
  6. EPOGIN S [Suspect]
     Indication: NEPHROGENIC ANAEMIA
     Route: 042
     Dates: start: 20120813
  7. ATELEC [Concomitant]
     Route: 048
  8. CARDENALIN [Concomitant]
     Route: 048
  9. THYRADIN [Concomitant]
     Indication: HYPOTHYROIDISM
     Route: 048
  10. PARIET [Concomitant]
     Route: 048
  11. LASIX [Concomitant]
     Route: 048
  12. THIODERON [Concomitant]
     Route: 048

REACTIONS (2)
  - Anti-erythropoietin antibody positive [Not Recovered/Not Resolved]
  - Myelodysplastic syndrome [Unknown]
